FAERS Safety Report 13021438 (Version 3)
Quarter: 2017Q2

REPORT INFORMATION
  Report Type: Report from Study
  Country: US (occurrence: US)
  Receive Date: 20161213
  Receipt Date: 20170427
  Transmission Date: 20170830
  Serious: Yes (Other)
  Sender: FDA-Public Use
  Company Number: US-AMGEN-USASP2016174116

PATIENT
  Sex: Female

DRUGS (5)
  1. ENBREL [Suspect]
     Active Substance: ETANERCEPT
     Indication: RHEUMATOID ARTHRITIS
     Dosage: UNK
     Route: 065
     Dates: start: 2015, end: 2016
  2. OXYBUTYNIN [Concomitant]
     Active Substance: OXYBUTYNIN
  3. MELOXICAM. [Concomitant]
     Active Substance: MELOXICAM
  4. GABAPENTIN. [Concomitant]
     Active Substance: GABAPENTIN
  5. ENBREL [Suspect]
     Active Substance: ETANERCEPT
     Dosage: UNK
     Route: 065

REACTIONS (4)
  - Hand deformity [Unknown]
  - Foot deformity [Unknown]
  - Rheumatoid arthritis [Unknown]
  - Finger deformity [Unknown]

NARRATIVE: CASE EVENT DATE: 2016
